FAERS Safety Report 7720663-2 (Version None)
Quarter: 2011Q3

REPORT INFORMATION
  Report Type: 
  Country: None (occurrence: None)
  Receive Date: 20110831
  Receipt Date: 20110822
  Transmission Date: 20111222
  Serious: Yes (Hospitalization, Other)
  Sender: FDA-Public Use
  Company Number: PHEH2011US01205

PATIENT
  Sex: Female
  Weight: 66 kg

DRUGS (1)
  1. EXJADE [Suspect]
     Dosage: 1500 MG, QD
     Route: 048

REACTIONS (4)
  - CHEST DISCOMFORT [None]
  - HYPERSENSITIVITY [None]
  - DYSPNOEA [None]
  - WHEEZING [None]
